FAERS Safety Report 9247079 (Version 1)
Quarter: 2013Q2

REPORT INFORMATION
  Report Type: Spontaneous
  Country: US (occurrence: US)
  Receive Date: 20130423
  Receipt Date: 20130423
  Transmission Date: 20140414
  Serious: No
  Sender: FDA-Public Use
  Company Number: US-009507513-1304USA011996

PATIENT
  Sex: Female

DRUGS (2)
  1. NASONEX [Suspect]
     Indication: SINUS DISORDER
     Dosage: 2 SPRAYS PER NOSTRIL, BID
     Route: 045
     Dates: start: 201303
  2. ACETAMINOPHEN [Concomitant]

REACTIONS (1)
  - Throat irritation [Not Recovered/Not Resolved]
